FAERS Safety Report 16042953 (Version 2)
Quarter: 2019Q1

REPORT INFORMATION
  Report Type: Spontaneous
  Country: JP (occurrence: JP)
  Receive Date: 20190306
  Receipt Date: 20190320
  Transmission Date: 20190418
  Serious: Yes (Life-Threatening)
  Sender: FDA-Public Use
  Company Number: JP-ASTRAZENECA-2019SE35999

PATIENT
  Age: 49 Year
  Sex: Female

DRUGS (3)
  1. DIENOGEST [Concomitant]
     Active Substance: DIENOGEST
     Route: 048
  2. FLUTIFORM [Concomitant]
     Active Substance: FLUTICASONE PROPIONATE\FORMOTEROL FUMARATE
     Route: 055
  3. FASENRA [Suspect]
     Active Substance: BENRALIZUMAB
     Indication: ASTHMA
     Dosage: 30.0MG UNKNOWN
     Route: 058
     Dates: start: 20180914, end: 20190104

REACTIONS (1)
  - Lymphoma [Unknown]

NARRATIVE: CASE EVENT DATE: 201902
